FAERS Safety Report 5163813-7 (Version None)
Quarter: 2006Q4

REPORT INFORMATION
  Report Type: 
  Country: None (occurrence: None)
  Receive Date: 20061129
  Receipt Date: 20061129
  Transmission Date: 20070319
  Serious: Yes (Death, Life-Threatening, Hospitalization)
  Sender: FDA-Public Use
  Company Number: None

PATIENT
  Age: 63 Year
  Sex: Male

DRUGS (2)
  1. LISINOPRIL [Suspect]
     Indication: HYPERTENSION
     Dosage: ONCE PO
     Route: 048
     Dates: start: 20060615, end: 20060615
  2. ALBUTEROL [Concomitant]

REACTIONS (6)
  - ANGIONEUROTIC OEDEMA [None]
  - ANOXIC ENCEPHALOPATHY [None]
  - BRADYCARDIA [None]
  - HYPOTENSION [None]
  - HYPOXIA [None]
  - SKIN DISCOLOURATION [None]
